FAERS Safety Report 24604879 (Version 1)
Quarter: 2024Q4

REPORT INFORMATION
  Report Type: Spontaneous
  Country: GB (occurrence: GB)
  Receive Date: 20241111
  Receipt Date: 20241111
  Transmission Date: 20250115
  Serious: Yes (Other)
  Sender: FERRING
  Company Number: None

PATIENT

DRUGS (2)
  1. PICOLAX (ANHYDROUS CITRIC ACID\MAGNESIUM OXIDE\SODIUM PICOSULFATE) [Suspect]
     Active Substance: ANHYDROUS CITRIC ACID\MAGNESIUM OXIDE\SODIUM PICOSULFATE
     Indication: Computerised tomogram
     Dosage: 2 SACHETS
     Route: 048
     Dates: start: 20241024, end: 20241024
  2. OMNIPAQUE [Suspect]
     Active Substance: IOHEXOL
     Indication: Computerised tomogram intestine
     Dosage: 5MLS X 6 OCCASIONS 30MLS TOTAL
     Route: 048
     Dates: start: 20241024, end: 20241024

REACTIONS (3)
  - Hallucination [Recovered/Resolved]
  - Diarrhoea [Recovered/Resolved]
  - Confusional state [Unknown]

NARRATIVE: CASE EVENT DATE: 20241024
